FAERS Safety Report 5740970-2 (Version None)
Quarter: 2008Q2

REPORT INFORMATION
  Report Type: 
  Country: None (occurrence: None)
  Receive Date: 20080516
  Receipt Date: 20080509
  Transmission Date: 20081010
  Serious: Yes (Disabling, Other)
  Sender: FDA-Public Use
  Company Number: IE-PFIZER INC-2008034514

PATIENT
  Age: 29 Year
  Sex: Female
  Weight: 59 kg

DRUGS (2)
  1. CHANTIX [Suspect]
     Route: 048
     Dates: start: 20080219, end: 20080224
  2. LAMOTRIGINE [Concomitant]
     Route: 048

REACTIONS (4)
  - DISORIENTATION [None]
  - DIZZINESS [None]
  - EPILEPTIC AURA [None]
  - NAUSEA [None]
